FAERS Safety Report 12341349 (Version 2)
Quarter: 2016Q2

REPORT INFORMATION
  Report Type: Report from Study
  Country: CN (occurrence: CN)
  Receive Date: 20160506
  Receipt Date: 20160509
  Transmission Date: 20160815
  Serious: Yes (Hospitalization, Other)
  Sender: FDA-Public Use
  Company Number: CN-BAXALTA-2016BLT002708

PATIENT
  Age: 5 Year
  Sex: Male
  Weight: 15 kg

DRUGS (3)
  1. ADVATE [Suspect]
     Active Substance: ANTIHEMOPHILIC FACTOR, HUMAN RECOMBINANT
     Indication: FACTOR VIII DEFICIENCY
     Dosage: 250 IU, 2X A MONTH
     Route: 042
     Dates: start: 2013, end: 201602
  2. ADVATE [Suspect]
     Active Substance: ANTIHEMOPHILIC FACTOR, HUMAN RECOMBINANT
     Indication: SURGERY
  3. ADVATE [Suspect]
     Active Substance: ANTIHEMOPHILIC FACTOR, HUMAN RECOMBINANT
     Indication: PROPHYLAXIS

REACTIONS (3)
  - Factor IX deficiency [Unknown]
  - Haemorrhage intracranial [Unknown]
  - Factor VIII inhibition [Unknown]

NARRATIVE: CASE EVENT DATE: 201602
